FAERS Safety Report 15787571 (Version 2)
Quarter: 2019Q1

REPORT INFORMATION
  Report Type: Report from Study
  Country: IT (occurrence: IT)
  Receive Date: 20190103
  Receipt Date: 20190123
  Transmission Date: 20190417
  Serious: Yes (Other)
  Sender: FDA-Public Use
  Company Number: IT-MYLANLABS-2018M1097749

PATIENT
  Age: 52 Year
  Sex: Female

DRUGS (4)
  1. FLEXIBAN [Concomitant]
     Active Substance: CYCLOBENZAPRINE
     Dosage: UNK
  2. KARVEZIDE [Concomitant]
     Active Substance: HYDROCHLOROTHIAZIDE\IRBESARTAN
     Dosage: UNK
  3. LANSOPRAZOLO MYLAN GENERICS 30 MG CAPSULE GASTRORESISTENTI [Suspect]
     Active Substance: LANSOPRAZOLE
     Indication: PRODUCT USED FOR UNKNOWN INDICATION
     Dosage: 1 DOSAGE FORM, TOTAL
     Route: 048
     Dates: start: 20180616, end: 20180616
  4. VENLAFAXINE [Concomitant]
     Active Substance: VENLAFAXINE HYDROCHLORIDE
     Dosage: 75 MILLIGRAM
     Route: 048

REACTIONS (5)
  - Conjunctival hyperaemia [Unknown]
  - Urticaria [Unknown]
  - Headache [Unknown]
  - Vomiting [Unknown]
  - Pruritus [Unknown]

NARRATIVE: CASE EVENT DATE: 20180616
